FAERS Safety Report 12306655 (Version 2)
Quarter: 2016Q2

REPORT INFORMATION
  Report Type: Not Available
  Country: None (occurrence: US)
  Receive Date: 20160426
  Receipt Date: 20160426
  Transmission Date: 20160815
  Serious: Yes (Other)
  Sender: FDA-Public Use
  Company Number: US-AKORN-29302

PATIENT
  Age: 71 Year
  Sex: Male

DRUGS (1)
  1. HYDRALAZINE HYDROCHLORIDE INJECTION USP [Suspect]
     Active Substance: HYDRALAZINE HYDROCHLORIDE

REACTIONS (2)
  - Blood pressure diastolic increased [Recovered/Resolved]
  - Drug ineffective [None]
